FAERS Safety Report 17046537 (Version 1)
Quarter: 2019Q4

REPORT INFORMATION
  Report Type: Spontaneous
  Country: US (occurrence: US)
  Receive Date: 20191119
  Receipt Date: 20191119
  Transmission Date: 20200122
  Serious: Yes (Other)
  Sender: FDA-Public Use
  Company Number: US-HRAPH01-201900899

PATIENT
  Age: 52 Year
  Sex: Male

DRUGS (1)
  1. METOPIRONE [Suspect]
     Active Substance: METYRAPONE
     Indication: CUSHING^S SYNDROME
     Dosage: DOSE ESCALATED TO 1000MG QID, THEN DECREASED AND STOPPED

REACTIONS (2)
  - Off label use [Unknown]
  - Pneumocystis jirovecii pneumonia [Unknown]
